FAERS Safety Report 6322155-4 (Version None)
Quarter: 2009Q3

REPORT INFORMATION
  Report Type: 
  Country: None (occurrence: None)
  Receive Date: 20090824
  Receipt Date: 20090123
  Transmission Date: 20100115
  Serious: No
  Sender: FDA-Public Use
  Company Number: US-ABBOTT-09P-163-0499928-00

PATIENT
  Sex: Male

DRUGS (10)
  1. NIASPAN [Suspect]
     Indication: DRUG USE FOR UNKNOWN INDICATION
     Dates: start: 20081201
  2. ASPIRIN [Concomitant]
     Indication: DRUG USE FOR UNKNOWN INDICATION
  3. LIPITOR [Concomitant]
     Indication: DRUG USE FOR UNKNOWN INDICATION
  4. BENICAR [Concomitant]
     Indication: DRUG USE FOR UNKNOWN INDICATION
  5. VITAMIN FOR KIDNEY [Concomitant]
     Indication: DRUG USE FOR UNKNOWN INDICATION
  6. NIFEDIPINE [Concomitant]
     Indication: DRUG USE FOR UNKNOWN INDICATION
  7. LEVOXYL [Concomitant]
     Indication: DRUG USE FOR UNKNOWN INDICATION
  8. FERROUS SULFATE TAB [Concomitant]
     Indication: DRUG USE FOR UNKNOWN INDICATION
     Dates: start: 20090122
  9. TERAZOSIN HCL [Concomitant]
     Indication: DRUG USE FOR UNKNOWN INDICATION
  10. LUPRON [Concomitant]
     Indication: PROSTATE CANCER

REACTIONS (1)
  - FEELING HOT [None]
